FAERS Safety Report 17933608 (Version 1)
Quarter: 2020Q2

REPORT INFORMATION
  Report Type: Spontaneous
  Country: US (occurrence: US)
  Receive Date: 20200623
  Receipt Date: 20200623
  Transmission Date: 20200714
  Serious: Yes (Hospitalization, Other)
  Sender: FDA-Public Use
  Company Number: US-TEVA-2020-US-1790338

PATIENT
  Age: 38 Year
  Sex: Female

DRUGS (8)
  1. FLUDARABINE [Suspect]
     Active Substance: FLUDARABINE PHOSPHATE
     Indication: BONE MARROW CONDITIONING REGIMEN
     Route: 065
  2. METHYLPREDNISOLONE. [Suspect]
     Active Substance: METHYLPREDNISOLONE
     Indication: LUPUS PNEUMONITIS
     Dosage: 60 MILLIGRAM DAILY;
     Route: 065
  3. PREDNISONE. [Suspect]
     Active Substance: PREDNISONE
     Indication: LUPUS PNEUMONITIS
     Route: 065
  4. PREDNISONE. [Suspect]
     Active Substance: PREDNISONE
     Indication: LUPUS PNEUMONITIS
     Route: 065
  5. OSELTAMIVIR [Suspect]
     Active Substance: OSELTAMIVIR
     Indication: H3N2 INFLUENZA
     Dosage: 150 MILLIGRAM DAILY;
     Route: 065
  6. RITUXIMAB. [Suspect]
     Active Substance: RITUXIMAB
     Indication: BONE MARROW CONDITIONING REGIMEN
     Route: 065
  7. CYCLOPHOSPHAMIDE. [Suspect]
     Active Substance: CYCLOPHOSPHAMIDE
     Indication: BONE MARROW CONDITIONING REGIMEN
     Route: 065
  8. OSELTAMIVIR [Suspect]
     Active Substance: OSELTAMIVIR
     Indication: H3N2 INFLUENZA
     Route: 065

REACTIONS (3)
  - Coronavirus infection [Unknown]
  - Drug resistance [Unknown]
  - Drug ineffective [Unknown]
